FAERS Safety Report 6617591-2 (Version None)
Quarter: 2010Q1

REPORT INFORMATION
  Report Type: 
  Country: None (occurrence: None)
  Receive Date: 20100308
  Receipt Date: 20100226
  Transmission Date: 20100710
  Serious: Yes (Hospitalization)
  Sender: FDA-Public Use
  Company Number: CZ-JNJFOC-20100300599

PATIENT
  Sex: Female

DRUGS (3)
  1. REMICADE [Suspect]
     Indication: RHEUMATOID ARTHRITIS
     Route: 042
  2. MEDROL [Concomitant]
     Indication: RHEUMATOID ARTHRITIS
  3. BETALOC [Concomitant]
     Indication: HYPERTENSION

REACTIONS (3)
  - CELLULITIS [None]
  - MULTI-ORGAN FAILURE [None]
  - SEPSIS [None]
